FAERS Safety Report 10375118 (Version 2)
Quarter: 2014Q4

REPORT INFORMATION
  Report Type: Spontaneous
  Country: CA (occurrence: CA)
  Receive Date: 20140811
  Receipt Date: 20141201
  Transmission Date: 20150528
  Serious: Yes (Hospitalization, Other)
  Sender: FDA-Public Use
  Company Number: CA-PFIZER INC-2014218601

PATIENT
  Age: 69 Year
  Sex: Male

DRUGS (2)
  1. PHENYTOIN. [Suspect]
     Active Substance: PHENYTOIN
     Dosage: 300 MG, 2X/DAY
     Route: 065
  2. VALPROATE SEMISODIUM [Suspect]
     Active Substance: DIVALPROEX SODIUM
     Dosage: 500 MG, 2X/DAY
     Route: 065

REACTIONS (11)
  - Stevens-Johnson syndrome [Unknown]
  - Asthenia [Unknown]
  - Fatigue [Unknown]
  - Nausea [Unknown]
  - Rash [Unknown]
  - Micturition urgency [Unknown]
  - Vomiting [Unknown]
  - Macule [Unknown]
  - Conjunctival disorder [Unknown]
  - Oral disorder [Unknown]
  - Pyrexia [Unknown]
